FAERS Safety Report 5346816-9 (Version None)
Quarter: 2007Q2

REPORT INFORMATION
  Report Type: 
  Country: None (occurrence: None)
  Receive Date: 20070501
  Receipt Date: 20070220
  Transmission Date: 20071010
  Serious: Yes (Hospitalization)
  Sender: FDA-Public Use
  Company Number: VNL_0437_2007

PATIENT
  Age: 65 Year
  Sex: Male
  Weight: 67.1324 kg

DRUGS (6)
  1. APOKYN [Suspect]
     Indication: PARKINSON'S DISEASE
     Dosage: 0.2 ML 4 - 5X/DAY SC
     Route: 058
     Dates: start: 20041109, end: 20060320
  2. CARBIDOPA AND LEVODOPA [Concomitant]
  3. SEROQUEL [Concomitant]
  4. VITAMIN B COMPLEX CAP [Concomitant]
  5. MIRAPEX [Concomitant]
  6. ARICEPT [Concomitant]

REACTIONS (1)
  - MYOCARDIAL INFARCTION [None]
